FAERS Safety Report 8095051-2 (Version None)
Quarter: 2012Q1

REPORT INFORMATION
  Report Type: 
  Country: None (occurrence: None)
  Receive Date: 20120131
  Receipt Date: 20120131
  Transmission Date: 20120608
  Serious: No
  Sender: FDA-Public Use
  Company Number: None

PATIENT
  Age: 24 Year
  Sex: Female
  Weight: 43.091 kg

DRUGS (3)
  1. LEVAQUIN [Suspect]
     Indication: BRONCHITIS
  2. AMINOPHYLLINE [Suspect]
  3. SOLU-MEDROL [Concomitant]

REACTIONS (7)
  - NAUSEA [None]
  - ARTHRALGIA [None]
  - PAIN [None]
  - EYE PAIN [None]
  - BURNING SENSATION [None]
  - MYALGIA [None]
  - INSOMNIA [None]
